FAERS Safety Report 7940328-1 (Version None)
Quarter: 2011Q4

REPORT INFORMATION
  Report Type: 
  Country: None (occurrence: None)
  Receive Date: 20111126
  Receipt Date: 20110927
  Transmission Date: 20120403
  Serious: No
  Sender: FDA-Public Use
  Company Number: US-BAYER-2011-093792

PATIENT

DRUGS (2)
  1. ALEVE (CAPLET) [Suspect]
     Dosage: 3 DF, UNK
  2. MUCINEX [Concomitant]
     Dosage: 2 DF, UNK

REACTIONS (1)
  - NO ADVERSE EVENT [None]
